FAERS Safety Report 25385421 (Version 1)
Quarter: 2025Q2

REPORT INFORMATION
  Report Type: Report from Study
  Country: US (occurrence: US)
  Receive Date: 20250602
  Receipt Date: 20250602
  Transmission Date: 20250717
  Serious: Yes (Hospitalization, Other)
  Sender: PUMA
  Company Number: US-PUMA BIOTECHNOLOGY, INC.-2025-PUM-US000395

PATIENT

DRUGS (4)
  1. NERLYNX [Suspect]
     Active Substance: NERATINIB
     Indication: Breast cancer
     Dosage: 2 DOSAGE FORM, DAILY
     Route: 048
     Dates: start: 20250224, end: 2025
  2. NERLYNX [Suspect]
     Active Substance: NERATINIB
     Dosage: 3 DOSAGE FORM, DAILY
     Route: 048
     Dates: start: 2025, end: 2025
  3. NERLYNX [Suspect]
     Active Substance: NERATINIB
     Dosage: 4 DOSAGE FORM, DAILY
     Route: 048
     Dates: start: 2025, end: 20250328
  4. LOPERAMIDE [Concomitant]
     Active Substance: LOPERAMIDE
     Indication: Prophylaxis against diarrhoea

REACTIONS (7)
  - Acute kidney injury [Unknown]
  - Diarrhoea [Unknown]
  - Syncope [Recovered/Resolved]
  - Dizziness [Recovered/Resolved]
  - Nausea [Recovered/Resolved]
  - Vomiting [Recovered/Resolved]
  - Underdose [Unknown]

NARRATIVE: CASE EVENT DATE: 20250310
